FAERS Safety Report 8111093-2 (Version None)
Quarter: 2012Q1

REPORT INFORMATION
  Report Type: 
  Country: None (occurrence: None)
  Receive Date: 20120203
  Receipt Date: 20110412
  Transmission Date: 20120608
  Serious: No
  Sender: FDA-Public Use
  Company Number: US-GLAXOSMITHKLINE-A0922676A

PATIENT
  Age: 25 Year
  Sex: Female

DRUGS (5)
  1. MULTI-VITAMINS [Concomitant]
  2. FOLIC ACID [Concomitant]
  3. LAMICTAL [Suspect]
     Dosage: 500MG PER DAY
     Route: 048
     Dates: start: 20100301
  4. CALCIUM [Concomitant]
  5. SYNTHROID [Concomitant]

REACTIONS (1)
  - MATERNAL EXPOSURE DURING PREGNANCY [None]
